FAERS Safety Report 14557483 (Version 1)
Quarter: 2018Q1

REPORT INFORMATION
  Report Type: Spontaneous
  Country: DE (occurrence: DE)
  Receive Date: 20180221
  Receipt Date: 20180221
  Transmission Date: 20180509
  Serious: Yes (Hospitalization)
  Sender: FDA-Public Use
  Company Number: DE-MYLANLABS-2018M1011255

PATIENT
  Age: 40 Year
  Sex: Male
  Weight: 120 kg

DRUGS (8)
  1. AMITRIPTYLINE [Suspect]
     Active Substance: AMITRIPTYLINE
     Indication: PRODUCT USED FOR UNKNOWN INDICATION
     Dosage: 50 MG, QD
     Route: 048
     Dates: start: 20170412, end: 20170418
  2. LITHIUM CARBONATE. [Suspect]
     Active Substance: LITHIUM CARBONATE
     Dosage: 1350 MG, QD
     Route: 048
     Dates: start: 20170509
  3. AMOROLFINE [Concomitant]
     Active Substance: AMOROLFINE
     Indication: FUNGAL INFECTION
  4. AMITRIPTYLINE [Suspect]
     Active Substance: AMITRIPTYLINE
     Dosage: 75 MG, QD
     Route: 048
     Dates: start: 20150901, end: 20170411
  5. LITHIUM CARBONATE. [Suspect]
     Active Substance: LITHIUM CARBONATE
     Indication: PRODUCT USED FOR UNKNOWN INDICATION
     Dosage: 1125 MG, QD
     Route: 048
     Dates: start: 20150901, end: 20170508
  6. AMITRIPTYLINE [Suspect]
     Active Substance: AMITRIPTYLINE
     Dosage: 25 MG, QD
     Route: 048
     Dates: start: 20170419, end: 20170425
  7. OCTENIDINE DIHYDROCHLORIDE [Concomitant]
     Indication: FUNGAL INFECTION
  8. BATRAFEN                           /00619301/ [Concomitant]
     Indication: FUNGAL INFECTION

REACTIONS (2)
  - Testicular pain [Unknown]
  - Erectile dysfunction [Recovering/Resolving]

NARRATIVE: CASE EVENT DATE: 201702
